FAERS Safety Report 10070933 (Version 2)
Quarter: 2014Q2

REPORT INFORMATION
  Report Type: Spontaneous
  Country: US (occurrence: US)
  Receive Date: 20140410
  Receipt Date: 20140529
  Transmission Date: 20141212
  Serious: Yes (Congenital Anomaly)
  Sender: FDA-Public Use
  Company Number: US-FRI-1000066305

PATIENT
  Age: 0 Day
  Sex: Male
  Weight: 2.79 kg

DRUGS (9)
  1. LEXAPRO [Suspect]
     Route: 064
  2. ACYCLOVIR [Concomitant]
     Route: 064
  3. INSULIN [Concomitant]
     Indication: DIABETES MELLITUS
     Route: 064
  4. BETAMETHASONE [Concomitant]
     Route: 064
  5. ERYTHROMYCIN [Concomitant]
     Route: 064
  6. AMPICILLIN [Concomitant]
     Route: 064
  7. MORPHINE [Concomitant]
     Route: 064
  8. NUBAIN [Concomitant]
     Route: 064
  9. VISTARIL [Concomitant]
     Route: 064

REACTIONS (2)
  - Hypospadias [Unknown]
  - Premature baby [Recovered/Resolved]
